FAERS Safety Report 15938406 (Version 1)
Quarter: 2019Q1

REPORT INFORMATION
  Report Type: Spontaneous
  Country: US (occurrence: US)
  Receive Date: 20190208
  Receipt Date: 20190208
  Transmission Date: 20190417
  Serious: No
  Sender: FDA-Public Use
  Company Number: US-ROCHE-2217009

PATIENT
  Sex: Female

DRUGS (9)
  1. CROMOLYN SODIUM. [Concomitant]
     Active Substance: CROMOLYN SODIUM
     Route: 047
  2. ADVAIR HFA [Concomitant]
     Active Substance: FLUTICASONE PROPIONATE\SALMETEROL XINAFOATE
     Indication: ASTHMA
  3. EPINEPHRINE. [Concomitant]
     Active Substance: EPINEPHRINE
  4. IPRATROPIUM [Concomitant]
     Active Substance: IPRATROPIUM
  5. MONTELUKAST [Concomitant]
     Active Substance: MONTELUKAST SODIUM
  6. XOLAIR [Suspect]
     Active Substance: OMALIZUMAB
     Indication: ASTHMA
     Route: 058
     Dates: start: 201801
  7. VENTOLIN [Concomitant]
     Active Substance: ALBUTEROL SULFATE
  8. PANTOPRAZOLE [Concomitant]
     Active Substance: PANTOPRAZOLE
  9. ZOLPIDEM [Concomitant]
     Active Substance: ZOLPIDEM\ZOLPIDEM TARTRATE

REACTIONS (1)
  - Flatulence [Unknown]
